FAERS Safety Report 7911704-8 (Version None)
Quarter: 2011Q4

REPORT INFORMATION
  Report Type: 
  Country: None (occurrence: None)
  Receive Date: 20111114
  Receipt Date: 20111102
  Transmission Date: 20120403
  Serious: Yes (Life-Threatening, Hospitalization)
  Sender: FDA-Public Use
  Company Number: DE-CUBIST-2011S1000761

PATIENT
  Age: 80 Year
  Sex: Male
  Weight: 100 kg

DRUGS (3)
  1. CUBICIN [Suspect]
     Route: 042
     Dates: start: 20110504, end: 20110517
  2. SIMVASTATIN [Suspect]
     Indication: LIPID METABOLISM DISORDER
     Route: 048
     Dates: end: 20110517
  3. CUBICIN [Suspect]
     Indication: STAPHYLOCOCCAL INFECTION
     Route: 042
     Dates: start: 20110504, end: 20110517

REACTIONS (1)
  - RHABDOMYOLYSIS [None]
